FAERS Safety Report 24397803 (Version 2)
Quarter: 2024Q4

REPORT INFORMATION
  Report Type: Spontaneous
  Country: JP (occurrence: JP)
  Receive Date: 20241004
  Receipt Date: 20241211
  Transmission Date: 20250114
  Serious: No
  Sender: MYLAN
  Company Number: JP-MYLANLABS-2024M1087264

PATIENT

DRUGS (1)
  1. EPIPEN [Suspect]
     Active Substance: EPINEPHRINE
     Indication: Product used for unknown indication
     Dosage: UNK
     Route: 065

REACTIONS (1)
  - Needle issue [Unknown]
